FAERS Safety Report 9777435 (Version 1)
Quarter: 2013Q4

REPORT INFORMATION
  Report Type: Report from Study
  Country: CN (occurrence: CN)
  Receive Date: 20131221
  Receipt Date: 20131221
  Transmission Date: 20140711
  Serious: Yes (Other)
  Sender: FDA-Public Use
  Company Number: CN-BAXTER-2013BAX052519

PATIENT
  Sex: 0

DRUGS (3)
  1. DIANEAL PD-1 WITH DEXTROSE [Suspect]
     Indication: PERITONEAL DIALYSIS
     Route: 033
  2. DIANEAL PD-1 W/ DEXTROSE 2.5% IN PLASTIC CONTAINER [Suspect]
     Indication: PERITONEAL DIALYSIS
     Route: 033
  3. ATORVASTATIN [Suspect]
     Indication: HYPERLIPIDAEMIA
     Route: 065

REACTIONS (1)
  - Anuria [Unknown]
